FAERS Safety Report 12120339 (Version 4)
Quarter: 2016Q4

REPORT INFORMATION
  Report Type: Report from Study
  Country: JP (occurrence: JP)
  Receive Date: 20160226
  Receipt Date: 20161003
  Transmission Date: 20170206
  Serious: Yes (Death, Other)
  Sender: FDA-Public Use
  Company Number: JP-EISAI MEDICAL RESEARCH-EC-2016-014716

PATIENT
  Age: 53 Year
  Sex: Female
  Weight: 54 kg

DRUGS (4)
  1. MAGLAX [Concomitant]
     Active Substance: MAGNESIUM OXIDE
  2. TOCLASE [Concomitant]
     Active Substance: PENTOXYVERINE
  3. HALAVEN [Suspect]
     Active Substance: ERIBULIN MESYLATE
     Indication: BREAST CANCER RECURRENT
     Route: 041
     Dates: start: 20150417, end: 20150515
  4. MS CONTIN [Concomitant]
     Active Substance: MORPHINE SULFATE

REACTIONS (2)
  - Malignant neoplasm progression [Fatal]
  - Neutropenia [Recovered/Resolved]

NARRATIVE: CASE EVENT DATE: 20150515
